FAERS Safety Report 23380009 (Version 1)
Quarter: 2024Q1

REPORT INFORMATION
  Report Type: Spontaneous
  Country: US (occurrence: US)
  Receive Date: 20240109
  Receipt Date: 20240109
  Transmission Date: 20240410
  Serious: No
  Sender: FDA-Public Use
  Company Number: US-SUN PHARMACEUTICAL INDUSTRIES LTD-2023R1-402960

PATIENT

DRUGS (1)
  1. DILTIAZEM [Suspect]
     Active Substance: DILTIAZEM
     Indication: Product used for unknown indication
     Dosage: 180 MILLIGRAM
     Route: 065

REACTIONS (1)
  - Rash [Unknown]
